FAERS Safety Report 7527895-7 (Version None)
Quarter: 2011Q2

REPORT INFORMATION
  Report Type: 
  Country: None (occurrence: None)
  Receive Date: 20110607
  Receipt Date: 20030408
  Transmission Date: 20111010
  Serious: Yes (Other)
  Sender: FDA-Public Use
  Company Number: PHFR2003GB01619

PATIENT
  Sex: Male

DRUGS (3)
  1. VENLAFAXINE [Concomitant]
  2. ASPIRIN [Concomitant]
  3. CLOZARIL [Suspect]
     Indication: SCHIZOPHRENIA
     Dosage: 500MG/DAY
     Route: 048
     Dates: start: 20020913

REACTIONS (1)
  - CEREBROVASCULAR ACCIDENT [None]
